FAERS Safety Report 19061357 (Version 1)
Quarter: 2021Q1

REPORT INFORMATION
  Report Type: Spontaneous
  Country: ES (occurrence: ES)
  Receive Date: 20210326
  Receipt Date: 20210326
  Transmission Date: 20210420
  Serious: Yes (Hospitalization)
  Sender: FDA-Public Use
  Company Number: NVSC2021ES058478

PATIENT
  Age: 61 Year
  Sex: Male

DRUGS (5)
  1. TOPIRAMATO [Interacting]
     Active Substance: TOPIRAMATE
     Indication: SUICIDE ATTEMPT
     Dosage: 500 MG, ONCE/SINGLE (5 CPS)
     Route: 048
     Dates: start: 20210116, end: 20210116
  2. DIAZEPAM. [Interacting]
     Active Substance: DIAZEPAM
     Indication: SUICIDE ATTEMPT
     Dosage: 60 MG, ONCE/SINGLE (12 CPS)
     Route: 048
     Dates: start: 20210116, end: 20210116
  3. LORAZEPAM. [Interacting]
     Active Substance: LORAZEPAM
     Indication: SUICIDE ATTEMPT
     Dosage: UNK
     Route: 048
     Dates: start: 20210116, end: 20210116
  4. BUPROPION. [Suspect]
     Active Substance: BUPROPION
     Indication: SUICIDE ATTEMPT
     Dosage: UNK
     Route: 048
     Dates: start: 20210116, end: 20210116
  5. DULOXETINE. [Interacting]
     Active Substance: DULOXETINE
     Indication: SUICIDE ATTEMPT
     Dosage: 600 MG, ONCE/SINGLE (10 CPS)
     Route: 048
     Dates: start: 20210116, end: 20210116

REACTIONS (5)
  - Rhabdomyolysis [Recovered/Resolved]
  - Slow speech [Recovered/Resolved]
  - Bradyphrenia [Recovered/Resolved]
  - Disorientation [Recovered/Resolved]
  - Depressed level of consciousness [Recovered/Resolved]

NARRATIVE: CASE EVENT DATE: 20210116
